FAERS Safety Report 6545850-0 (Version None)
Quarter: 2010Q1

REPORT INFORMATION
  Report Type: 
  Country: None (occurrence: None)
  Receive Date: 20100121
  Receipt Date: 20100113
  Transmission Date: 20100710
  Serious: Yes (Other)
  Sender: FDA-Public Use
  Company Number: PHHY2009JP09958

PATIENT
  Age: 52 Year
  Sex: Male

DRUGS (9)
  1. CERTICAN [Suspect]
     Indication: HEART TRANSPLANT
     Dosage: UNK
     Route: 048
     Dates: start: 20080701
  2. NEORAL [Suspect]
     Indication: HEART TRANSPLANT
     Dosage: UNK
     Route: 048
     Dates: start: 20040201
  3. NEORAL [Suspect]
     Dosage: UNK
     Route: 048
     Dates: end: 20070101
  4. NEORAL [Suspect]
     Dosage: UNK
     Route: 048
  5. PREDONINE [Suspect]
     Indication: HEART TRANSPLANT
     Dosage: UNK
     Route: 048
     Dates: start: 20040201
  6. PREDONINE [Suspect]
     Dosage: UNK
     Route: 048
     Dates: end: 20070101
  7. PREDONINE [Suspect]
     Dosage: UNK
     Route: 048
  8. CELLCEPT [Suspect]
     Indication: RENAL TRANSPLANT
     Dosage: UNK
     Route: 048
     Dates: start: 20040201
  9. CELLCEPT [Suspect]
     Dosage: UNK
     Route: 048
     Dates: end: 20080701

REACTIONS (10)
  - CORONARY ARTERY DISEASE [None]
  - CYTOMEGALOVIRUS INFECTION [None]
  - EPSTEIN-BARR VIRUS INFECTION [None]
  - INTERLEUKIN-2 RECEPTOR INCREASED [None]
  - LYMPHOMA [None]
  - MALAISE [None]
  - PANEL-REACTIVE ANTIBODY INCREASED [None]
  - SNAKE BITE [None]
  - TRANSPLANT REJECTION [None]
  - WHITE BLOOD CELL COUNT DECREASED [None]
